FAERS Safety Report 23529665 (Version 1)
Quarter: 2024Q1

REPORT INFORMATION
  Report Type: Report from Study
  Country: US (occurrence: US)
  Receive Date: 20240216
  Receipt Date: 20240216
  Transmission Date: 20240410
  Serious: Yes (Other)
  Sender: FDA-Public Use
  Company Number: US-ABBVIE-5639330

PATIENT
  Age: 67 Year
  Sex: Male

DRUGS (2)
  1. IMBRUVICA [Suspect]
     Active Substance: IBRUTINIB
     Indication: Product used for unknown indication
     Dosage: HOLD FOR 5 DAYS
     Route: 048
     Dates: end: 202401
  2. IMBRUVICA [Suspect]
     Active Substance: IBRUTINIB
     Indication: Product used for unknown indication
     Route: 048
     Dates: start: 202401

REACTIONS (3)
  - Prostatic operation [Recovered/Resolved]
  - Haemorrhage [Unknown]
  - Rosacea [Unknown]

NARRATIVE: CASE EVENT DATE: 20240117
